FAERS Safety Report 25503159 (Version 1)
Quarter: 2025Q3

REPORT INFORMATION
  Report Type: Spontaneous
  Country: US (occurrence: US)
  Receive Date: 20250702
  Receipt Date: 20250702
  Transmission Date: 20251020
  Serious: No
  Sender: ZYDUS PHARM
  Company Number: US-CADILA HEALTHCARE LIMITED-US-ZYDUS-124994

PATIENT

DRUGS (1)
  1. NATEGLINIDE [Suspect]
     Active Substance: NATEGLINIDE
     Indication: Diabetes mellitus
     Route: 048
     Dates: start: 20250604

REACTIONS (2)
  - Drug ineffective [Not Recovered/Not Resolved]
  - Dizziness [Recovered/Resolved]

NARRATIVE: CASE EVENT DATE: 20250605
